FAERS Safety Report 9423357 (Version 1)
Quarter: 2013Q3

REPORT INFORMATION
  Report Type: Spontaneous
  Country: US (occurrence: US)
  Receive Date: 20130726
  Receipt Date: 20130726
  Transmission Date: 20140515
  Serious: Yes (Hospitalization)
  Sender: FDA-Public Use
  Company Number: US-JNJFOC-20130711951

PATIENT
  Age: 77 Year
  Sex: Male
  Weight: 120.66 kg

DRUGS (15)
  1. XARELTO [Suspect]
     Indication: CEREBROVASCULAR ACCIDENT PROPHYLAXIS
     Route: 048
     Dates: start: 201301, end: 20130713
  2. XARELTO [Suspect]
     Indication: ATRIAL FIBRILLATION
     Route: 048
     Dates: start: 201301, end: 20130713
  3. LASIX [Concomitant]
     Route: 048
  4. LEVOXYL [Concomitant]
     Route: 048
  5. DIGOXIN [Concomitant]
     Route: 048
  6. ROPINIROLE [Concomitant]
     Route: 048
  7. CARVEDILOL [Concomitant]
     Route: 048
  8. TRICOR [Concomitant]
     Route: 048
  9. TRIAZOLAM [Concomitant]
     Dosage: 1-2 TABLETS
     Route: 048
  10. TRADJENTA [Concomitant]
     Route: 048
  11. SPIRONOLACTONE [Concomitant]
     Route: 048
  12. FLOMAX [Concomitant]
     Dosage: 2 CAPSULES
     Route: 048
  13. LANTUS [Concomitant]
     Route: 065
  14. STOOL SOFTENERS [Concomitant]
     Route: 048
  15. ALBUTEROL [Concomitant]
     Dosage: 3-4 TIMES A DAY
     Route: 055

REACTIONS (4)
  - Syncope [Unknown]
  - Respiratory distress [Unknown]
  - Blood creatinine abnormal [Unknown]
  - International normalised ratio increased [Unknown]
